FAERS Safety Report 9774687 (Version 3)
Quarter: 2014Q1

REPORT INFORMATION
  Report Type: Not Available
  Country: IT (occurrence: IT)
  Receive Date: 20131220
  Receipt Date: 20140228
  Transmission Date: 20141002
  Serious: Yes (Other)
  Sender: FDA-Public Use
  Company Number: IT-PURDUE-GBR-2013-0016688

PATIENT
  Age: 90 Year
  Sex: Female

DRUGS (8)
  1. OXYCONTIN 20 MG COMPRESSE A RILASCIO PROLUNGATO [Suspect]
     Indication: PAIN
     Dosage: 40 MG, DAILY (2 X 20 MG), DAILY
     Route: 048
     Dates: start: 20131016, end: 20131020
  2. OXYCONTIN 5 MG COMPRESSE A RILASCIO PROLUNGATO [Suspect]
     Indication: PAIN
     Dosage: 20 MG, DAILY (5 X 5 MG), DAILY
     Route: 048
     Dates: start: 20131016, end: 20131020
  3. CARDIRENE [Concomitant]
     Dosage: 75 MG, UNK
     Route: 048
  4. LYRICA [Concomitant]
     Dosage: 75 MG, UNK
  5. TOLEP [Concomitant]
     Dosage: 300 MG, UNK
  6. LANTUS [Concomitant]
     Dosage: 100 U/ML, UNK
     Route: 042
  7. LASIX                              /00032601/ [Concomitant]
     Dosage: 50 MG, UNK
  8. DOBETIN                            /00056201/ [Concomitant]
     Dosage: 1000 MCG/ML, UNK
     Route: 042

REACTIONS (4)
  - Respiratory failure [Recovering/Resolving]
  - Chronic obstructive pulmonary disease [Recovering/Resolving]
  - Toxicity to various agents [Recovering/Resolving]
  - Cardiac failure [Recovering/Resolving]
